FAERS Safety Report 4513505-X (Version None)
Quarter: 2004Q4

REPORT INFORMATION
  Report Type: 
  Country: None (occurrence: None)
  Receive Date: 20041124
  Receipt Date: 20041109
  Transmission Date: 20050328
  Serious: Yes (Hospitalization)
  Sender: FDA-Public Use
  Company Number: F01200301089

PATIENT
  Age: 66 Year
  Sex: Male

DRUGS (1)
  1. (ALFUZOSIN) - TABLET PR - 10MG [Suspect]
     Indication: BENIGN PROSTATIC HYPERPLASIA
     Dosage: 10 MG OD ORAL
     Route: 048
     Dates: start: 20021118, end: 20030730

REACTIONS (3)
  - PROSTATE CANCER [None]
  - PROSTATIC PAIN [None]
  - URINARY RETENTION [None]
